FAERS Safety Report 24546816 (Version 1)
Quarter: 2024Q4

REPORT INFORMATION
  Report Type: Spontaneous
  Country: TW (occurrence: TW)
  Receive Date: 20241024
  Receipt Date: 20241024
  Transmission Date: 20250115
  Serious: Yes (Hospitalization)
  Sender: JOHNSON AND JOHNSON
  Company Number: TW-MTPC-MTPC2024-0021678

PATIENT
  Age: 37 Year
  Sex: Male

DRUGS (4)
  1. CANAGLIFLOZIN [Suspect]
     Active Substance: CANAGLIFLOZIN
     Indication: Diabetes mellitus
     Dosage: 100 MILLIGRAM, QD
     Route: 048
     Dates: start: 20211221, end: 20220120
  2. CANAGLIFLOZIN [Suspect]
     Active Substance: CANAGLIFLOZIN
     Dosage: 100 MILLIGRAM, QD
     Route: 048
     Dates: start: 20220125, end: 20220201
  3. CANAGLIFLOZIN\TENELIGLIPTIN [Suspect]
     Active Substance: CANAGLIFLOZIN\TENELIGLIPTIN
     Indication: Diabetes mellitus
     Dosage: 100 MILLIGRAM, QD
     Route: 048
     Dates: start: 20211221, end: 20220120
  4. CANAGLIFLOZIN\TENELIGLIPTIN [Suspect]
     Active Substance: CANAGLIFLOZIN\TENELIGLIPTIN
     Dosage: 100 MILLIGRAM, QD
     Route: 048
     Dates: start: 20220125, end: 20220201

REACTIONS (2)
  - Euglycaemic diabetic ketoacidosis [Unknown]
  - Metabolic acidosis [Unknown]

NARRATIVE: CASE EVENT DATE: 20240120
